FAERS Safety Report 8418431-1 (Version None)
Quarter: 2012Q2

REPORT INFORMATION
  Report Type: 
  Country: None (occurrence: None)
  Receive Date: 20120607
  Receipt Date: 20120531
  Transmission Date: 20120825
  Serious: Yes (Hospitalization)
  Sender: FDA-Public Use
  Company Number: SE-PFIZER INC-2012130921

PATIENT
  Age: 91 Year
  Sex: Male

DRUGS (2)
  1. WARFARIN SODIUM [Concomitant]
     Dosage: UNK
  2. TOLTERODINE TARTRATE [Suspect]
     Indication: URINARY INCONTINENCE
     Dosage: 2 MG, UNK
     Route: 048
     Dates: start: 20101008, end: 20120416

REACTIONS (3)
  - ANAEMIA VITAMIN B12 DEFICIENCY [None]
  - BLOOD PRESSURE INCREASED [None]
  - CONFUSIONAL STATE [None]
